FAERS Safety Report 10738059 (Version 1)
Quarter: 2015Q1

REPORT INFORMATION
  Report Type: Other
  Country: US (occurrence: US)
  Receive Date: 20150126
  Receipt Date: 20150126
  Transmission Date: 20150721
  Serious: No
  Sender: FDA-Public Use
  Company Number: US-DYAX CORP.-2014DX000097

PATIENT
  Age: 52 Year
  Sex: Female

DRUGS (3)
  1. ICATIBANT [Concomitant]
     Active Substance: ICATIBANT ACETATE
     Indication: ANGIOEDEMA
  2. KALBITOR [Suspect]
     Active Substance: ECALLANTIDE
     Indication: ANGIOEDEMA
     Route: 065
  3. CYCLOSPORINE. [Suspect]
     Active Substance: CYCLOSPORINE
     Indication: URTICARIA
     Route: 065

REACTIONS (3)
  - Therapeutic response decreased [Unknown]
  - Blood creatinine increased [Unknown]
  - Off label use [Unknown]
